FAERS Safety Report 9879518 (Version 1)
Quarter: 2014Q1

REPORT INFORMATION
  Report Type: Spontaneous
  Country: US (occurrence: US)
  Receive Date: 20140206
  Receipt Date: 20140206
  Transmission Date: 20141002
  Serious: No
  Sender: FDA-Public Use
  Company Number: US-GILEAD-2013-0082814

PATIENT
  Sex: Male

DRUGS (4)
  1. STRIBILD [Suspect]
     Indication: HIV INFECTION
     Dosage: UNK
     Dates: start: 20130115, end: 201305
  2. TRUVADA [Concomitant]
     Indication: HIV INFECTION
  3. DARUNAVIR [Concomitant]
     Indication: HIV INFECTION
  4. RALTEGRAVIR [Concomitant]
     Indication: HIV INFECTION

REACTIONS (4)
  - Decreased appetite [Recovered/Resolved]
  - Sleep disorder [Recovered/Resolved]
  - Abdominal discomfort [Recovering/Resolving]
  - Asthenia [Recovered/Resolved]
